FAERS Safety Report 10779075 (Version 3)
Quarter: 2015Q2

REPORT INFORMATION
  Report Type: Spontaneous
  Country: US (occurrence: US)
  Receive Date: 20150210
  Receipt Date: 20150524
  Transmission Date: 20150821
  Serious: No
  Sender: FDA-Public Use
  Company Number: US-JNJFOC-20150121231

PATIENT
  Sex: Female
  Weight: 61.69 kg

DRUGS (1)
  1. DURAGESIC [Suspect]
     Active Substance: FENTANYL
     Indication: FIBROMYALGIA
     Route: 062

REACTIONS (7)
  - Product quality issue [Unknown]
  - Inappropriate schedule of drug administration [Unknown]
  - Skin irritation [Unknown]
  - Wrong technique in drug usage process [Unknown]
  - Product quality issue [Unknown]
  - Product adhesion issue [Unknown]
  - Nervousness [Unknown]

NARRATIVE: CASE EVENT DATE: 2014
